FAERS Safety Report 8553165-4 (Version None)
Quarter: 2012Q3

REPORT INFORMATION
  Report Type: 
  Country: None (occurrence: None)
  Receive Date: 20120731
  Receipt Date: 20120725
  Transmission Date: 20120928
  Serious: Yes (Other)
  Sender: FDA-Public Use
  Company Number: US-PFIZER INC-2012180705

PATIENT
  Sex: Male
  Weight: 71.655 kg

DRUGS (4)
  1. GLUCOPHAGE [Concomitant]
     Indication: DIABETES MELLITUS
     Dosage: UNK
  2. SUTENT [Suspect]
     Indication: PANCREATIC NEUROENDOCRINE TUMOUR
     Dosage: 37.5 MG, 1X/DAY
     Route: 048
     Dates: start: 20120216
  3. PREVACID [Concomitant]
     Dosage: UNK
  4. CELEXA [Concomitant]
     Dosage: UNK

REACTIONS (19)
  - ORAL PAIN [None]
  - EPISTAXIS [None]
  - NAUSEA [None]
  - NASAL ULCER [None]
  - TOOTHACHE [None]
  - PRURITUS [None]
  - VOMITING [None]
  - DYSGEUSIA [None]
  - HEADACHE [None]
  - DECREASED APPETITE [None]
  - AGEUSIA [None]
  - INSOMNIA [None]
  - HAIR COLOUR CHANGES [None]
  - NEURALGIA [None]
  - ASTHENIA [None]
  - APHAGIA [None]
  - FATIGUE [None]
  - WEIGHT DECREASED [None]
  - DIARRHOEA [None]
